FAERS Safety Report 15642170 (Version 1)
Quarter: 2018Q4

REPORT INFORMATION
  Report Type: Spontaneous
  Country: US (occurrence: US)
  Receive Date: 20181121
  Receipt Date: 20181121
  Transmission Date: 20190205
  Serious: No
  Sender: FDA-Public Use
  Company Number: US-CELGENEUS-USA-20181104722

PATIENT
  Age: 20 Year
  Sex: Female

DRUGS (1)
  1. OTEZLA [Suspect]
     Active Substance: APREMILAST
     Indication: PSORIASIS
     Route: 048
     Dates: start: 201811

REACTIONS (5)
  - Somnolence [Unknown]
  - Depressed mood [Unknown]
  - Headache [Unknown]
  - Mood altered [Unknown]
  - Nausea [Unknown]

NARRATIVE: CASE EVENT DATE: 20181105
